APPROVED DRUG PRODUCT: CYCLOSPORINE
Active Ingredient: CYCLOSPORINE
Strength: 25MG
Dosage Form/Route: CAPSULE;ORAL
Application: A219049 | Product #001 | TE Code: AB1
Applicant: QILU PHARMACEUTICAL CO LTD
Approved: Sep 15, 2025 | RLD: No | RS: No | Type: RX